FAERS Safety Report 8049687-5 (Version None)
Quarter: 2012Q1

REPORT INFORMATION
  Report Type: 
  Country: None (occurrence: None)
  Receive Date: 20120117
  Receipt Date: 20120110
  Transmission Date: 20120608
  Serious: Yes (Other)
  Sender: FDA-Public Use
  Company Number: US-GLAXOSMITHKLINE-A0951636A

PATIENT
  Age: 75 Year
  Sex: Female
  Weight: 54.9 kg

DRUGS (1)
  1. VOTRIENT [Suspect]
     Indication: RENAL CANCER
     Dosage: 800MG PER DAY
     Route: 065
     Dates: start: 20110728

REACTIONS (12)
  - LUNG NEOPLASM [None]
  - ASTHENIA [None]
  - LIVER FUNCTION TEST ABNORMAL [None]
  - PLEURAL EFFUSION [None]
  - BILIARY TRACT DISORDER [None]
  - METASTASES TO THORAX [None]
  - ATELECTASIS [None]
  - SEDATION [None]
  - LYMPHADENOPATHY [None]
  - THYROID MASS [None]
  - CALCINOSIS [None]
  - HILAR LYMPHADENOPATHY [None]
